FAERS Safety Report 12185666 (Version 1)
Quarter: 2016Q1

REPORT INFORMATION
  Report Type: Spontaneous
  Country: US (occurrence: US)
  Receive Date: 20160316
  Receipt Date: 20160316
  Transmission Date: 20160526
  Serious: No
  Sender: FDA-Public Use
  Company Number: US-WARNER CHILCOTT, LLC-1049219

PATIENT
  Age: 62 Year
  Sex: Female

DRUGS (5)
  1. ESTRACE [Suspect]
     Active Substance: ESTRADIOL
     Route: 067
  2. ESTRACE [Suspect]
     Active Substance: ESTRADIOL
     Route: 067
  3. ESTRACE [Suspect]
     Active Substance: ESTRADIOL
     Route: 067
  4. ESTRACE [Suspect]
     Active Substance: ESTRADIOL
     Indication: PROPHYLAXIS URINARY TRACT INFECTION
     Route: 067
     Dates: start: 201412
  5. ESTRACE [Suspect]
     Active Substance: ESTRADIOL
     Route: 067

REACTIONS (7)
  - Weight increased [Recovered/Resolved]
  - Metrorrhagia [Recovered/Resolved]
  - Off label use [Recovered/Resolved]
  - Abdominal distension [Recovered/Resolved]
  - Vulvovaginal burning sensation [Recovered/Resolved]
  - Abdominal discomfort [Recovered/Resolved]
  - Fluid retention [Recovered/Resolved]

NARRATIVE: CASE EVENT DATE: 201412
